FAERS Safety Report 4804850-9 (Version None)
Quarter: 2005Q4

REPORT INFORMATION
  Report Type: 
  Country: None (occurrence: None)
  Receive Date: 20051020
  Receipt Date: 20050811
  Transmission Date: 20060501
  Serious: Yes (Other)
  Sender: FDA-Public Use
  Company Number: PHNU2005DE02863

PATIENT
  Age: 56 Year
  Sex: Male

DRUGS (1)
  1. DIOVAN [Suspect]
     Indication: HYPERTENSION
     Dosage: 1 DF, QD
     Dates: start: 20040901, end: 20050501

REACTIONS (4)
  - PRURITUS [None]
  - RASH VESICULAR [None]
  - SKIN SWELLING [None]
  - TRANSIENT ACANTHOLYTIC DERMATOSIS [None]
